FAERS Safety Report 18926531 (Version 4)
Quarter: 2021Q4

REPORT INFORMATION
  Report Type: Spontaneous
  Country: None (occurrence: US)
  Receive Date: 20210223
  Receipt Date: 20211122
  Transmission Date: 20220303
  Serious: No
  Sender: FDA-Public Use
  Company Number: US-AKCEA THERAPEUTICS-2020IS001590

PATIENT
  Age: 51 Year
  Sex: Female

DRUGS (4)
  1. TEGSEDI [Suspect]
     Active Substance: INOTERSEN SODIUM
     Indication: Hereditary neuropathic amyloidosis
     Route: 058
     Dates: start: 20201007, end: 20210715
  2. DEVICE [Suspect]
     Active Substance: DEVICE
  3. TEGSEDI [Suspect]
     Active Substance: INOTERSEN SODIUM
     Route: 058
     Dates: end: 202101
  4. TEGSEDI [Suspect]
     Active Substance: INOTERSEN SODIUM
     Route: 058
     Dates: end: 20210709

REACTIONS (14)
  - Creatinine urine abnormal [Unknown]
  - Protein urine present [Unknown]
  - Urine leukocyte esterase positive [Unknown]
  - White blood cells urine positive [Unknown]
  - Platelet count decreased [Not Recovered/Not Resolved]
  - Bacterial test positive [Unknown]
  - Urinary sediment present [Unknown]
  - Urine protein/creatinine ratio increased [Unknown]
  - Laboratory test interference [Unknown]
  - Urinary occult blood positive [Unknown]
  - Red blood cells urine positive [Unknown]
  - Alanine aminotransferase abnormal [Unknown]
  - Urine abnormality [Unknown]
  - Urinary casts [Unknown]
